FAERS Safety Report 20770851 (Version 1)
Quarter: 2022Q2

REPORT INFORMATION
  Report Type: Report from Study
  Country: DE (occurrence: DE)
  Receive Date: 20220429
  Receipt Date: 20220429
  Transmission Date: 20220721
  Serious: Yes (Hospitalization)
  Sender: FDA-Public Use
  Company Number: DE-PFIZER INC-202200111369

PATIENT
  Age: 63 Year
  Sex: Female

DRUGS (10)
  1. XELJANZ [Suspect]
     Active Substance: TOFACITINIB CITRATE
     Dosage: 10 MG, 1X/DAY
  2. UNSPECIFIED INGREDIENT [Suspect]
     Active Substance: UNSPECIFIED INGREDIENT
     Dosage: NO DOSE GIVEN
  3. RAMIPRIL [Concomitant]
     Active Substance: RAMIPRIL
     Dosage: 5 MG, 2X/DAY
     Dates: start: 202110
  4. METOPROLOL [Concomitant]
     Active Substance: METOPROLOL
     Dosage: 95, 0,5 (UNK UNITS) 1X/DAY
     Dates: start: 201402
  5. TORSEMIDE [Concomitant]
     Active Substance: TORSEMIDE
     Dosage: 10 MG, 2X/DAY
     Dates: start: 201402
  6. LEVOTHYROXINE SODIUM [Concomitant]
     Active Substance: LEVOTHYROXINE SODIUM
     Dosage: 50 UG, 1X/DAY
     Dates: start: 201402
  7. PANTOPRAZOLE [Concomitant]
     Active Substance: PANTOPRAZOLE
     Dosage: 40 (UNK UNITS), 1X/DAY
     Dates: start: 202001
  8. TRAMADOL [Concomitant]
     Active Substance: TRAMADOL
     Dosage: 50 (UNK UNITS), WHEN NEEDED
     Dates: start: 201901
  9. CLOPIDOGREL [Concomitant]
     Active Substance: CLOPIDOGREL BISULFATE
     Dosage: 75 (UNK UNITS), 1X/DAY
     Dates: start: 202002
  10. EPLERENONE [Concomitant]
     Active Substance: EPLERENONE
     Dosage: 1 DF, 1X/DAY
     Dates: start: 201908

REACTIONS (1)
  - Coronary artery disease [Recovered/Resolved]

NARRATIVE: CASE EVENT DATE: 20200619
